FAERS Safety Report 20326881 (Version 1)
Quarter: 2022Q1

REPORT INFORMATION
  Report Type: Report from Study
  Country: BE (occurrence: BE)
  Receive Date: 20220112
  Receipt Date: 20220112
  Transmission Date: 20220424
  Serious: Yes (Death, Other)
  Sender: FDA-Public Use
  Company Number: BE-BRISTOL-MYERS SQUIBB COMPANY-BMS-2021-144814

PATIENT
  Sex: Male

DRUGS (2)
  1. NIVOLUMAB [Suspect]
     Active Substance: NIVOLUMAB
     Indication: Bile duct cancer
     Dosage: 480 MILLIGRAM
     Route: 042
     Dates: start: 20210518, end: 20210518
  2. REGORAFENIB [Suspect]
     Active Substance: REGORAFENIB
     Indication: Bile duct cancer
     Dosage: 90 MILLIGRAM
     Route: 048
     Dates: start: 20210518, end: 20210601

REACTIONS (1)
  - Death [Fatal]

NARRATIVE: CASE EVENT DATE: 20210601
